FAERS Safety Report 7078777-9 (Version None)
Quarter: 2010Q4

REPORT INFORMATION
  Report Type: 
  Country: None (occurrence: None)
  Receive Date: 20101102
  Receipt Date: 20101028
  Transmission Date: 20110411
  Serious: Yes (Other)
  Sender: FDA-Public Use
  Company Number: US-PFIZER INC-2010128845

PATIENT
  Sex: Female

DRUGS (2)
  1. TOVIAZ [Suspect]
     Dosage: 4 MG, UNK
  2. OXYBUTYNIN HYDROCHLORIDE [Suspect]
     Dosage: UNK

REACTIONS (4)
  - DRUG INEFFECTIVE [None]
  - DRUG TOLERANCE INCREASED [None]
  - MICTURITION URGENCY [None]
  - URINARY INCONTINENCE [None]
